FAERS Safety Report 8246641-5 (Version None)
Quarter: 2012Q1

REPORT INFORMATION
  Report Type: 
  Country: None (occurrence: None)
  Receive Date: 20120330
  Receipt Date: 20120322
  Transmission Date: 20120608
  Serious: Yes (Other)
  Sender: FDA-Public Use
  Company Number: SE-SANOFI-AVENTIS-2012SA019772

PATIENT
  Age: 78 Year
  Sex: Male

DRUGS (5)
  1. ALFUZOSIN HCL [Suspect]
     Route: 048
     Dates: start: 19820101
  2. VESICARE [Concomitant]
  3. MOVIPREP [Concomitant]
  4. LACTULOSE [Concomitant]
  5. MINIRIN [Concomitant]
     Dates: start: 20110101

REACTIONS (4)
  - DEMENTIA [None]
  - CONSTIPATION [None]
  - POLLAKIURIA [None]
  - CEREBRAL HAEMORRHAGE [None]
